FAERS Safety Report 22755819 (Version 3)
Quarter: 2025Q1

REPORT INFORMATION
  Report Type: Spontaneous
  Country: US (occurrence: US)
  Receive Date: 20230727
  Receipt Date: 20250203
  Transmission Date: 20250408
  Serious: No
  Sender: LUPIN
  Company Number: US-LUPIN PHARMACEUTICALS INC.-2023-06065

PATIENT

DRUGS (5)
  1. ALBUTEROL SULFATE [Suspect]
     Active Substance: ALBUTEROL SULFATE
     Indication: Asthma
     Dosage: UNK, QD 2 PUFFS 2 TO 4 TIMES A DAY
     Dates: start: 202307
  2. ALBUTEROL SULFATE [Suspect]
     Active Substance: ALBUTEROL SULFATE
     Indication: Chronic obstructive pulmonary disease
  3. CLONAZEPAM [Concomitant]
     Active Substance: CLONAZEPAM
     Indication: Product used for unknown indication
     Route: 065
  4. MELOXICAM [Concomitant]
     Active Substance: MELOXICAM
     Indication: Arthritis
     Route: 065
  5. METFORMIN [Concomitant]
     Active Substance: METFORMIN HYDROCHLORIDE
     Indication: Diabetes mellitus
     Route: 065

REACTIONS (3)
  - Asthma [Unknown]
  - Drug dose omission by device [Unknown]
  - Device delivery system issue [Unknown]
